FAERS Safety Report 14032183 (Version 2)
Quarter: 2017Q4

REPORT INFORMATION
  Report Type: Report from Study
  Country: US (occurrence: US)
  Receive Date: 20171003
  Receipt Date: 20171107
  Transmission Date: 20180321
  Serious: Yes (Other)
  Sender: FDA-Public Use
  Company Number: US-BIOGEN-2014BI036790

PATIENT
  Sex: Female

DRUGS (2)
  1. AVONEX [Suspect]
     Active Substance: INTERFERON BETA-1A
     Route: 030
     Dates: start: 20110101, end: 201601
  2. AVONEX [Suspect]
     Active Substance: INTERFERON BETA-1A
     Indication: MULTIPLE SCLEROSIS
     Route: 065
     Dates: start: 2009

REACTIONS (8)
  - Injection site infection [Unknown]
  - Injection site pain [Unknown]
  - Glioblastoma [Not Recovered/Not Resolved]
  - Skin indentation [Not Recovered/Not Resolved]
  - Impaired healing [Unknown]
  - Soft tissue atrophy [Unknown]
  - Intentional overdose [Unknown]
  - Intentional product use issue [Unknown]
